FAERS Safety Report 14131964 (Version 1)
Quarter: 2017Q4

REPORT INFORMATION
  Report Type: Spontaneous
  Country: FR (occurrence: FR)
  Receive Date: 20171026
  Receipt Date: 20171026
  Transmission Date: 20180321
  Serious: Yes (Other)
  Sender: FDA-Public Use
  Company Number: FR-SA-2017SA207131

PATIENT
  Age: 73 Year
  Sex: Female

DRUGS (7)
  1. IKOREL [Concomitant]
     Active Substance: NICORANDIL
     Route: 065
  2. GLUCOPHAGE [Suspect]
     Active Substance: METFORMIN HYDROCHLORIDE
     Route: 065
  3. DOLIPRANE [Concomitant]
     Active Substance: ACETAMINOPHEN
     Route: 065
  4. KARDEGIC [Concomitant]
     Active Substance: ASPIRIN DL-LYSINE
     Route: 065
  5. APROVEL [Suspect]
     Active Substance: IRBESARTAN
     Route: 048
  6. LEVOTHYROX [Suspect]
     Active Substance: LEVOTHYROXINE
     Route: 065
  7. INEXIUM [Concomitant]
     Active Substance: ESOMEPRAZOLE
     Route: 065

REACTIONS (8)
  - Angina pectoris [Unknown]
  - Breast swelling [Unknown]
  - Lip swelling [Unknown]
  - Sleep disorder [Unknown]
  - Chest pain [Unknown]
  - Paraesthesia [Unknown]
  - Nausea [Unknown]
  - Peripheral coldness [Unknown]
